FAERS Safety Report 23848030 (Version 4)
Quarter: 2025Q1

REPORT INFORMATION
  Report Type: Spontaneous
  Country: JP (occurrence: JP)
  Receive Date: 20240513
  Receipt Date: 20250213
  Transmission Date: 20250409
  Serious: Yes (Hospitalization, Other)
  Sender: PFIZER
  Company Number: JP-ONO-2024JP007361

PATIENT
  Age: 6 Decade
  Sex: Male

DRUGS (6)
  1. BRAFTOVI [Suspect]
     Active Substance: ENCORAFENIB
     Indication: Colon cancer
     Route: 048
     Dates: start: 20230628
  2. BRAFTOVI [Suspect]
     Active Substance: ENCORAFENIB
     Indication: Metastases to liver
  3. MEKTOVI [Suspect]
     Active Substance: BINIMETINIB
     Indication: Colon cancer
     Route: 048
     Dates: start: 20230628
  4. MEKTOVI [Suspect]
     Active Substance: BINIMETINIB
     Indication: Metastases to liver
  5. ERBITUX [Concomitant]
     Active Substance: CETUXIMAB
     Indication: Colon cancer
     Dates: start: 20230628
  6. ERBITUX [Concomitant]
     Active Substance: CETUXIMAB
     Indication: Metastases to liver

REACTIONS (5)
  - Second primary malignancy [Recovering/Resolving]
  - Malignant melanoma in situ [Recovering/Resolving]
  - Blood creatinine increased [Recovered/Resolved]
  - Lentigo [Not Recovered/Not Resolved]
  - Melanocytic naevus [Not Recovered/Not Resolved]

NARRATIVE: CASE EVENT DATE: 20230719
